FAERS Safety Report 8931157 (Version 1)
Quarter: 2012Q4

REPORT INFORMATION
  Report Type: 
  Country: GB (occurrence: GB)
  Receive Date: 20121128
  Receipt Date: 20121128
  Transmission Date: 20130627
  Serious: Yes (Other)
  Sender: FDA-Public Use
  Company Number: GB-MERCK-1211GBR010633

PATIENT
  Age: 69 Year
  Sex: Male
  Weight: 100 kg

DRUGS (9)
  1. JANUVIA [Suspect]
     Dosage: 100 mg, qd
     Route: 048
     Dates: start: 20120903, end: 20121008
  2. AMLODIPINE [Concomitant]
     Indication: HYPERTENSION
     Dosage: 5 mg, qd
     Route: 048
     Dates: start: 2006
  3. ASPIRIN [Concomitant]
     Indication: HYPERTENSION
     Dosage: 75 mg, qd
     Route: 048
     Dates: start: 2006
  4. ASPIRIN [Concomitant]
     Indication: DIABETES MELLITUS
  5. ATENOLOL [Concomitant]
     Indication: HYPERTENSION
     Dosage: 50 mg, qd
     Route: 048
     Dates: start: 2003
  6. ENALAPRIL MALEATE [Concomitant]
     Indication: HYPERTENSION
     Dosage: 20 mg, qd
     Route: 048
     Dates: start: 2003
  7. GLICLAZIDE [Concomitant]
     Indication: DIABETES MELLITUS
     Dosage: 80 mg, qd
     Route: 048
     Dates: start: 2008
  8. OMEPRAZOLE [Concomitant]
     Indication: HIATUS HERNIA
     Dosage: 20 mg, qd
     Route: 048
     Dates: start: 2009
  9. SIMVASTATIN [Concomitant]
     Indication: DIABETES MELLITUS
     Dosage: 40 mg, UNK
     Route: 048
     Dates: start: 2006

REACTIONS (7)
  - Conjunctivitis [Recovered/Resolved]
  - Impetigo [Recovered/Resolved]
  - Nasal congestion [Recovered/Resolved]
  - Eye pain [Recovered/Resolved]
  - Periorbital cellulitis [Recovered/Resolved]
  - Nasal discomfort [Recovered/Resolved]
  - Eye discharge [Recovered/Resolved]
